FAERS Safety Report 22266948 (Version 1)
Quarter: 2023Q2

REPORT INFORMATION
  Report Type: Spontaneous
  Country: US (occurrence: None)
  Receive Date: 20230428
  Receipt Date: 20230428
  Transmission Date: 20230722
  Serious: No
  Sender: FDA-Public Use
  Company Number: None

PATIENT
  Sex: Female

DRUGS (1)
  1. ZEJULA [Suspect]
     Active Substance: NIRAPARIB
     Indication: Fallopian tube cancer
     Dosage: 200 MG DAILY PO?
     Route: 048
     Dates: start: 202111, end: 20230209

REACTIONS (3)
  - Disease progression [None]
  - Drug ineffective [None]
  - Fallopian tube cancer [None]
